FAERS Safety Report 21508216 (Version 1)
Quarter: 2022Q4

REPORT INFORMATION
  Report Type: Spontaneous
  Country: US (occurrence: US)
  Receive Date: 20221026
  Receipt Date: 20221026
  Transmission Date: 20230112
  Serious: Yes (Hospitalization, Other)
  Sender: FDA-Public Use
  Company Number: US-drreddys-LIT/USA/22/0156139

PATIENT
  Age: 79 Year
  Sex: Male

DRUGS (2)
  1. DAPTOMYCIN [Suspect]
     Active Substance: DAPTOMYCIN
     Indication: Staphylococcal infection
  2. DAPTOMYCIN [Suspect]
     Active Substance: DAPTOMYCIN
     Indication: Enterococcal infection

REACTIONS (4)
  - Acute respiratory failure [Unknown]
  - Eosinophilic pneumonia acute [Unknown]
  - Cardiac failure congestive [Unknown]
  - Acute kidney injury [Unknown]
